FAERS Safety Report 23530390 (Version 2)
Quarter: 2024Q1

REPORT INFORMATION
  Report Type: Spontaneous
  Country: US (occurrence: US)
  Receive Date: 20240216
  Receipt Date: 20240229
  Transmission Date: 20240410
  Serious: Yes (Hospitalization, Disabling, Other)
  Sender: FDA-Public Use
  Company Number: US-SA-SAC20240214000810

PATIENT
  Age: 61 Year
  Sex: Female

DRUGS (2)
  1. ARAVA [Suspect]
     Active Substance: LEFLUNOMIDE
     Indication: Rheumatoid arthritis
     Dosage: UNK
     Dates: start: 20220216, end: 20220311
  2. ACTEMRA [Concomitant]
     Active Substance: TOCILIZUMAB
     Dosage: UNK

REACTIONS (15)
  - Loss of personal independence in daily activities [Unknown]
  - Blindness unilateral [Unknown]
  - Blindness [Unknown]
  - Stevens-Johnson syndrome [Unknown]
  - Ocular hyperaemia [Unknown]
  - Oral mucosal blistering [Unknown]
  - Lip swelling [Unknown]
  - Dry mouth [Unknown]
  - Stomatitis [Unknown]
  - Rash maculo-papular [Unknown]
  - Pyrexia [Unknown]
  - Pain [Unknown]
  - Conjunctivitis [Unknown]
  - Vulvovaginal injury [Unknown]
  - Toxic epidermal necrolysis [Unknown]

NARRATIVE: CASE EVENT DATE: 20220101
